FAERS Safety Report 6638296-8 (Version None)
Quarter: 2010Q1

REPORT INFORMATION
  Report Type: 
  Country: None (occurrence: None)
  Receive Date: 20100317
  Receipt Date: 20100302
  Transmission Date: 20100710
  Serious: Yes (Hospitalization)
  Sender: FDA-Public Use
  Company Number: US-ROCHE-691151

PATIENT
  Sex: Female
  Weight: 97.1 kg

DRUGS (12)
  1. BEVACIZUMAB [Suspect]
     Indication: DRUG USE FOR UNKNOWN INDICATION
     Dosage: FORM: GIVEN ON DAYS 1 AND 15 OF A 28 DAY CYCLE, LAST DOSE PRIOR TO SAE WAS GIVEN ON 24 FEBRUARY 2010
     Route: 042
     Dates: start: 20091103
  2. GEMCITABINE HCL [Suspect]
     Indication: DRUG USE FOR UNKNOWN INDICATION
     Dosage: LAST DOSE PRIOR TO SAE WAS GIVEN ON 24 FEBRUARY 2010
     Route: 042
     Dates: start: 20091103
  3. CARBOPLATIN [Suspect]
     Indication: DRUG USE FOR UNKNOWN INDICATION
     Dosage: DOSE: AUC, LAST DOSE PRIOR TO SAE:24 FEBRUARY 2010
     Route: 042
     Dates: start: 20091103
  4. BENICAR [Concomitant]
  5. BENICAR [Concomitant]
     Dosage: DRUG: BENICAR HOT, DOSE: 40 MG/12.5 MG DAILY.
  6. LEVOTHYROXINE SODIUM [Concomitant]
  7. ASPIRIN [Concomitant]
  8. B6 VITAMIN [Concomitant]
  9. I CAPS [Concomitant]
  10. REGLAN [Concomitant]
     Dosage: FREQUENCY: QID PRN
  11. INDOMETHACIN [Concomitant]
     Dosage: DRUG: INDOMETHACON
  12. ZOFRAN [Concomitant]

REACTIONS (5)
  - DEHYDRATION [None]
  - DIZZINESS [None]
  - FATIGUE [None]
  - HYPERKALAEMIA [None]
  - NAUSEA [None]
